FAERS Safety Report 24798467 (Version 2)
Quarter: 2025Q3

REPORT INFORMATION
  Report Type: Spontaneous
  Country: US (occurrence: US)
  Receive Date: 20250102
  Receipt Date: 20250815
  Transmission Date: 20251020
  Serious: Yes (Other)
  Sender: COOPERSURGICAL
  Company Number: US-COOPERSURGICAL, INC.-2024CPS004145

PATIENT
  Sex: Female
  Weight: 61.224 kg

DRUGS (1)
  1. PARAGARD T 380A [Suspect]
     Active Substance: COPPER
     Route: 015
     Dates: start: 20120913

REACTIONS (19)
  - Deep vein thrombosis postoperative [Recovered/Resolved]
  - Post procedural pulmonary embolism [Recovered/Resolved]
  - Surgery [Recovered/Resolved]
  - Reproductive complication associated with device [Not Recovered/Not Resolved]
  - Device breakage [Recovered/Resolved]
  - Foreign body in reproductive tract [Recovered/Resolved]
  - Complication of device removal [Recovered/Resolved]
  - Hypertension [Unknown]
  - Anxiety [Unknown]
  - Insomnia [Unknown]
  - Fatigue [Unknown]
  - Heavy menstrual bleeding [Recovered/Resolved]
  - Device dislocation [Recovered/Resolved]
  - Amenorrhoea [Unknown]
  - Menstruation irregular [Recovered/Resolved]
  - Bacterial vaginosis [Unknown]
  - Inflammation [Unknown]
  - Muscle spasms [Unknown]
  - Unevaluable event [Unknown]

NARRATIVE: CASE EVENT DATE: 20190101
